FAERS Safety Report 6231478-9 (Version None)
Quarter: 2009Q2

REPORT INFORMATION
  Report Type: 
  Country: None (occurrence: None)
  Receive Date: 20090616
  Receipt Date: 20090608
  Transmission Date: 20091009
  Serious: Yes (Other)
  Sender: FDA-Public Use
  Company Number: A0775331A

PATIENT
  Age: 22 Year
  Sex: Female

DRUGS (2)
  1. LAMOTRIGINE [Suspect]
     Indication: EPILEPSY
     Dosage: 300MG PER DAY
     Route: 048
  2. ATIVAN [Concomitant]

REACTIONS (4)
  - ELECTROCARDIOGRAM ABNORMAL [None]
  - FALL [None]
  - GRAND MAL CONVULSION [None]
  - INJURY [None]
